FAERS Safety Report 8610954-5 (Version None)
Quarter: 2012Q3

REPORT INFORMATION
  Report Type: 
  Country: None (occurrence: None)
  Receive Date: 20120420
  Receipt Date: 20111020
  Transmission Date: 20120928
  Serious: Yes (Other)
  Sender: FDA-Public Use
  Company Number: WAES 1110USA03347

PATIENT
  Age: 24 Month
  Sex: Female

DRUGS (1)
  1. SINGULAIR [Suspect]
     Indication: ASTHMA
     Dosage: 4 MG/DAILY/PO
     Route: 048

REACTIONS (1)
  - CONVULSION [None]
